FAERS Safety Report 7435298-9 (Version None)
Quarter: 2011Q2

REPORT INFORMATION
  Report Type: 
  Country: None (occurrence: None)
  Receive Date: 20110425
  Receipt Date: 20110414
  Transmission Date: 20111010
  Serious: Yes (Other)
  Sender: FDA-Public Use
  Company Number: US-ASTRAZENECA-2011SE22976

PATIENT
  Age: 21943 Day
  Sex: Female
  Weight: 79 kg

DRUGS (7)
  1. ONGLYZA [Suspect]
     Indication: TYPE 2 DIABETES MELLITUS
     Route: 048
     Dates: start: 20090904
  2. COREG [Suspect]
     Route: 065
  3. THIAZIDE [Concomitant]
  4. CRESTOR [Suspect]
     Route: 048
  5. METFORMIN [Concomitant]
  6. PREVACID [Concomitant]
  7. GLIPIZIDE [Concomitant]

REACTIONS (3)
  - SWELLING FACE [None]
  - SWOLLEN TONGUE [None]
  - OEDEMA PERIPHERAL [None]
